FAERS Safety Report 5158087-7 (Version None)
Quarter: 2006Q4

REPORT INFORMATION
  Report Type: 
  Country: None (occurrence: None)
  Receive Date: 20061116
  Receipt Date: 20061103
  Transmission Date: 20070319
  Serious: No
  Sender: FDA-Public Use
  Company Number: 2006118784

PATIENT
  Sex: Male

DRUGS (1)
  1. DILANTIN [Suspect]
     Dosage: 1800 MG (600 MG, FREQUENCY:TID), ORAL
     Route: 048

REACTIONS (2)
  - BRAIN NEOPLASM [None]
  - ILL-DEFINED DISORDER [None]
